FAERS Safety Report 8856636 (Version 2)
Quarter: 2012Q4

REPORT INFORMATION
  Report Type: 
  Country: US (occurrence: None)
  Receive Date: 20121024
  Receipt Date: 20121105
  Transmission Date: 20130627
  Serious: Yes (Death)
  Sender: FDA-Public Use
  Company Number: None

PATIENT
  Age: 72 Year
  Sex: Male
  Weight: 83.46 kg

DRUGS (2)
  1. UNSPECIFIED INGREDIENT [Suspect]
     Indication: OPEN HEART SURGERY
     Route: 016
     Dates: start: 20110324, end: 20110324
  2. UNSPECIFIED INGREDIENT [Suspect]
     Indication: OPEN HEART SURGERY
     Dates: start: 20110328, end: 20110330

REACTIONS (3)
  - Meningitis fungal [None]
  - Product contamination microbial [None]
  - Post procedural infection [None]
